FAERS Safety Report 20369539 (Version 4)
Quarter: 2024Q4

REPORT INFORMATION
  Report Type: Report from Study
  Country: GB (occurrence: GB)
  Receive Date: 20220124
  Receipt Date: 20241018
  Transmission Date: 20250115
  Serious: Yes (Death, Other)
  Sender: ABBVIE
  Company Number: GB-JNJFOC-20220130317

PATIENT

DRUGS (6)
  1. IMBRUVICA [Suspect]
     Active Substance: IBRUTINIB
     Indication: Post transplant lymphoproliferative disorder
     Route: 048
  2. CYCLOPHOSPHAMIDE [Suspect]
     Active Substance: CYCLOPHOSPHAMIDE
     Indication: Post transplant lymphoproliferative disorder
     Route: 065
  3. DOXORUBICIN [Suspect]
     Active Substance: DOXORUBICIN
     Indication: Post transplant lymphoproliferative disorder
     Route: 065
  4. PREDNISOLONE [Suspect]
     Active Substance: PREDNISOLONE
     Indication: Post transplant lymphoproliferative disorder
     Route: 065
  5. RITUXIMAB [Suspect]
     Active Substance: RITUXIMAB
     Indication: Post transplant lymphoproliferative disorder
     Route: 065
  6. VINCRISTINE [Suspect]
     Active Substance: VINCRISTINE
     Indication: Post transplant lymphoproliferative disorder
     Route: 065

REACTIONS (53)
  - Hypophosphataemia [Unknown]
  - Sepsis [Fatal]
  - Pneumocystis jirovecii pneumonia [Fatal]
  - Infection [Unknown]
  - Gastrointestinal disorder [Unknown]
  - Blood disorder [Unknown]
  - Off label use [Unknown]
  - Product use in unapproved indication [Unknown]
  - Tumour lysis syndrome [Unknown]
  - Abdominal pain [Unknown]
  - Neutropenic sepsis [Unknown]
  - Swelling face [Unknown]
  - Pyrexia [Unknown]
  - Peripheral sensory neuropathy [Unknown]
  - Dysphagia [Unknown]
  - Vomiting [Unknown]
  - Nausea [Unknown]
  - Nail infection [Unknown]
  - Hypotension [Unknown]
  - Rash erythematous [Unknown]
  - Cerebrovascular accident [Fatal]
  - Confusional state [Unknown]
  - Pericardial effusion [Unknown]
  - Hypomagnesaemia [Unknown]
  - Lower respiratory tract infection [Unknown]
  - Dyspnoea [Unknown]
  - Hypokalaemia [Unknown]
  - Intestinal obstruction [Fatal]
  - Pneumocystis jirovecii pneumonia [Unknown]
  - Febrile neutropenia [Unknown]
  - Ischaemia [Unknown]
  - Syncope [Unknown]
  - Urinary tract infection [Unknown]
  - Somnolence [Unknown]
  - Acute kidney injury [Unknown]
  - Pain in extremity [Unknown]
  - Neutrophil count decreased [Unknown]
  - Pulmonary embolism [Fatal]
  - Pneumonia [Unknown]
  - Enteritis [Unknown]
  - Anaemia [Unknown]
  - Chills [Unknown]
  - Abdominal distension [Unknown]
  - Herpes zoster [Unknown]
  - Device related infection [Unknown]
  - Amylase increased [Unknown]
  - Hyperglycaemia [Unknown]
  - Device related infection [Unknown]
  - Hip fracture [Unknown]
  - Acidosis [Unknown]
  - Upper respiratory tract infection [Unknown]
  - Diarrhoea [Unknown]
  - Myopathy [Unknown]
